FAERS Safety Report 7631815-4 (Version None)
Quarter: 2011Q3

REPORT INFORMATION
  Report Type: 
  Country: None (occurrence: None)
  Receive Date: 20110725
  Receipt Date: 20110418
  Transmission Date: 20111222
  Serious: No
  Sender: FDA-Public Use
  Company Number: US-BRISTOL-MYERS SQUIBB COMPANY-15656762

PATIENT
  Age: 57 Year
  Sex: Male

DRUGS (5)
  1. COUMADIN [Suspect]
  2. CLARITIN [Concomitant]
  3. MAGNESIUM [Concomitant]
  4. BLOOD PRESSURE MEDICATION [Concomitant]
  5. CHOLESTEROL MEDICATION [Concomitant]

REACTIONS (1)
  - PLATELET COUNT DECREASED [None]
